FAERS Safety Report 22281490 (Version 1)
Quarter: 2023Q2

REPORT INFORMATION
  Report Type: Spontaneous
  Country: US (occurrence: None)
  Receive Date: 20230504
  Receipt Date: 20230504
  Transmission Date: 20230721
  Serious: No
  Sender: FDA-Public Use
  Company Number: 2023A087838

PATIENT
  Sex: Female

DRUGS (1)
  1. CRESTOR [Suspect]
     Active Substance: ROSUVASTATIN CALCIUM
     Route: 048
     Dates: start: 202211, end: 202304

REACTIONS (6)
  - Pain [Unknown]
  - Limb discomfort [Unknown]
  - Arthralgia [Unknown]
  - Muscle spasms [Unknown]
  - Asthenia [Unknown]
  - Pain in extremity [Unknown]
